FAERS Safety Report 16679798 (Version 1)
Quarter: 2019Q3

REPORT INFORMATION
  Report Type: Spontaneous
  Country: US (occurrence: US)
  Receive Date: 20190807
  Receipt Date: 20190807
  Transmission Date: 20191004
  Serious: Yes (Other)
  Sender: FDA-Public Use
  Company Number: PHEH2019US032250

PATIENT
  Sex: Female

DRUGS (1)
  1. VOTRIENT [Suspect]
     Active Substance: PAZOPANIB HYDROCHLORIDE
     Indication: CERVIX CARCINOMA
     Dosage: 600 MG, QD
     Route: 048
     Dates: start: 20180505

REACTIONS (1)
  - Cervix carcinoma recurrent [Unknown]
